FAERS Safety Report 24363186 (Version 1)
Quarter: 2024Q3

REPORT INFORMATION
  Report Type: Spontaneous
  Country: IL (occurrence: IL)
  Receive Date: 20240925
  Receipt Date: 20240925
  Transmission Date: 20241017
  Serious: Yes (Hospitalization)
  Sender: TEVA
  Company Number: IL-TEVA-VS-3245599

PATIENT
  Age: 77 Year
  Sex: Female

DRUGS (6)
  1. DOXORUBICIN [Suspect]
     Active Substance: DOXORUBICIN
     Indication: Product used for unknown indication
     Route: 065
  2. EPCORITAMAB [Concomitant]
     Active Substance: EPCORITAMAB
  3. RITUXIMAB [Concomitant]
     Active Substance: RITUXIMAB
  4. VINCRISTINE [Concomitant]
     Active Substance: VINCRISTINE
     Dosage: TEVA
  5. NEUPOGEN [Concomitant]
     Active Substance: FILGRASTIM
  6. CYCLOPHOSPHAMIDE [Concomitant]
     Active Substance: CYCLOPHOSPHAMIDE

REACTIONS (1)
  - Salmonellosis [Unknown]
